FAERS Safety Report 8096074-X (Version None)
Quarter: 2012Q1

REPORT INFORMATION
  Report Type: 
  Country: None (occurrence: None)
  Receive Date: 20120129
  Receipt Date: 20111214
  Transmission Date: 20120608
  Serious: No
  Sender: FDA-Public Use
  Company Number: US-ABBOTT-11P-163-0883831-00

PATIENT
  Sex: Female
  Weight: 79.45 kg

DRUGS (3)
  1. PREDNISONE TAB [Concomitant]
     Indication: PSORIATIC ARTHROPATHY
  2. HUMIRA [Suspect]
     Indication: PSORIATIC ARTHROPATHY
     Dates: start: 20111020, end: 20111020
  3. METHOTREXATE [Concomitant]
     Indication: PSORIATIC ARTHROPATHY

REACTIONS (6)
  - PLEURISY [None]
  - DYSSTASIA [None]
  - WHITE BLOOD CELL COUNT INCREASED [None]
  - MUSCLE SPASMS [None]
  - PAIN IN EXTREMITY [None]
  - FAECES PALE [None]
